FAERS Safety Report 25059856 (Version 3)
Quarter: 2025Q2

REPORT INFORMATION
  Report Type: Report from Study
  Country: CO (occurrence: CO)
  Receive Date: 20250310
  Receipt Date: 20250423
  Transmission Date: 20250717
  Serious: Yes (Hospitalization, Other)
  Sender: JOHNSON AND JOHNSON
  Company Number: CO-JNJFOC-20250234837

PATIENT
  Age: 27 Year
  Sex: Male
  Weight: 85 kg

DRUGS (13)
  1. INVEGA SUSTENNA [Suspect]
     Active Substance: PALIPERIDONE PALMITATE
     Indication: Schizophrenia
     Dosage: DATE OF LAST APPLICATION WAS 14/APR/2025
     Route: 030
     Dates: start: 20200929
  2. INVEGA SUSTENNA [Suspect]
     Active Substance: PALIPERIDONE PALMITATE
  3. INVEGA SUSTENNA [Suspect]
     Active Substance: PALIPERIDONE PALMITATE
  4. FLUOXETINE [Concomitant]
     Active Substance: FLUOXETINE HYDROCHLORIDE
  5. MIRTAZAPINE [Concomitant]
     Active Substance: MIRTAZAPINE
  6. GABAPENTIN [Concomitant]
     Active Substance: GABAPENTIN
  7. ZOPICLONE VALCOTE [Concomitant]
  8. LANSOPRAZOLE [Concomitant]
     Active Substance: LANSOPRAZOLE
  9. SUCRALFATE [Concomitant]
     Active Substance: SUCRALFATE
  10. OLANZAPINE [Concomitant]
     Active Substance: OLANZAPINE
  11. NIFEDIPINE [Concomitant]
     Active Substance: NIFEDIPINE
  12. RISPERIDONE [Concomitant]
     Active Substance: RISPERIDONE
  13. MELATONIN [Concomitant]
     Active Substance: MELATONIN

REACTIONS (21)
  - Loss of consciousness [Recovered/Resolved]
  - Paralysis [Not Recovered/Not Resolved]
  - Syncope [Not Recovered/Not Resolved]
  - Aggression [Not Recovered/Not Resolved]
  - Hallucination [Not Recovered/Not Resolved]
  - Aneurysm [Not Recovered/Not Resolved]
  - Seizure [Not Recovered/Not Resolved]
  - Psychotic disorder [Unknown]
  - Euphoric mood [Not Recovered/Not Resolved]
  - Oxygen saturation decreased [Unknown]
  - Insomnia [Not Recovered/Not Resolved]
  - Emotional distress [Unknown]
  - Memory impairment [Not Recovered/Not Resolved]
  - Irritability [Unknown]
  - Mobility decreased [Not Recovered/Not Resolved]
  - Diarrhoea [Not Recovered/Not Resolved]
  - Disorientation [Not Recovered/Not Resolved]
  - Injection site reaction [Unknown]
  - Muscle spasms [Not Recovered/Not Resolved]
  - Restlessness [Unknown]
  - Neurological symptom [Unknown]

NARRATIVE: CASE EVENT DATE: 20240901
